FAERS Safety Report 7928911-0 (Version None)
Quarter: 2011Q4

REPORT INFORMATION
  Report Type: 
  Country: None (occurrence: None)
  Receive Date: 20111118
  Receipt Date: 20111104
  Transmission Date: 20120403
  Serious: Yes (Other)
  Sender: FDA-Public Use
  Company Number: BR-WATSON-2011-18423

PATIENT
  Age: 40 Year
  Sex: Male

DRUGS (4)
  1. AZATHIOPRINE [Suspect]
     Dosage: UNKNOWN
     Route: 065
     Dates: start: 19720101
  2. PREDNISONE TAB [Suspect]
     Indication: IMMUNOSUPPRESSION
     Dosage: UNKNOWN
     Route: 065
     Dates: start: 19720101
  3. PREDNISONE TAB [Suspect]
     Indication: TRANSPLANT REJECTION
     Dosage: 15 MG, UNK
     Dates: start: 19741201
  4. AZATHIOPRINE [Suspect]
     Indication: IMMUNOSUPPRESSION
     Dosage: 150 MG, DAILY
     Dates: start: 19741201

REACTIONS (1)
  - CHRONIC MYELOID LEUKAEMIA [None]
